FAERS Safety Report 6733759-9 (Version None)
Quarter: 2010Q2

REPORT INFORMATION
  Report Type: 
  Country: None (occurrence: None)
  Receive Date: 20100520
  Receipt Date: 20100517
  Transmission Date: 20101027
  Serious: Yes (Death, Hospitalization, Other)
  Sender: FDA-Public Use
  Company Number: PHHY2009IE51284

PATIENT
  Sex: Female

DRUGS (1)
  1. CLOZARIL [Suspect]
     Indication: PSYCHOTIC DISORDER
     Dosage: UNK
     Route: 048
     Dates: start: 20080514, end: 20091116

REACTIONS (5)
  - ASTHENIA [None]
  - CEREBROVASCULAR ACCIDENT [None]
  - PARKINSON'S DISEASE [None]
  - PNEUMONIA ASPIRATION [None]
  - RESPIRATORY FAILURE [None]
